FAERS Safety Report 20819751 (Version 1)
Quarter: 2022Q2

REPORT INFORMATION
  Report Type: Spontaneous
  Country: CN (occurrence: CN)
  Receive Date: 20220512
  Receipt Date: 20220512
  Transmission Date: 20220721
  Serious: Yes (Other)
  Sender: FDA-Public Use
  Company Number: CN-BoehringerIngelheim-2022-BI-168742

PATIENT
  Age: 91 Year
  Sex: Female

DRUGS (2)
  1. ALTEPLASE [Suspect]
     Active Substance: ALTEPLASE
     Indication: Thrombolysis
     Dosage: 4.5 MG IV BOLUS WITHIN 1 MINUTE
     Route: 042
     Dates: start: 20220421
  2. ALTEPLASE [Suspect]
     Active Substance: ALTEPLASE
     Dosage: REMAINING DRUG WAS PUMPED WITHIN 1 HOUR
     Route: 042
     Dates: end: 20220421

REACTIONS (3)
  - Restlessness [Recovering/Resolving]
  - Lip swelling [Recovering/Resolving]
  - Off label use [Unknown]

NARRATIVE: CASE EVENT DATE: 20220421
